FAERS Safety Report 17411931 (Version 1)
Quarter: 2020Q1

REPORT INFORMATION
  Report Type: Spontaneous
  Country: US (occurrence: US)
  Receive Date: 20200129
  Receipt Date: 20200129
  Transmission Date: 20200409
  Serious: No
  Sender: FDA-Public Use
  Company Number: None

PATIENT
  Sex: Female

DRUGS (1)
  1. ENTECAVIR 0.5MG TEVA PHARMACEUTICALS USA [Suspect]
     Active Substance: ENTECAVIR
     Indication: HEPATITIS B
     Route: 048
     Dates: start: 20190829

REACTIONS (5)
  - Depression [None]
  - Nightmare [None]
  - Emotional disorder [None]
  - Dizziness [None]
  - Asthenia [None]
